FAERS Safety Report 9192231 (Version 7)
Quarter: 2014Q1

REPORT INFORMATION
  Report Type: Spontaneous
  Country: US (occurrence: US)
  Receive Date: 20130327
  Receipt Date: 20140217
  Transmission Date: 20141002
  Serious: Yes (Hospitalization, Other)
  Sender: FDA-Public Use
  Company Number: US-JNJFOC-20120700658

PATIENT
  Age: 50 Year
  Sex: Male
  Weight: 95.26 kg

DRUGS (15)
  1. EXTRA STRENGTH TYLENOL [Suspect]
     Indication: INFLUENZA
     Dosage: 8 PILLS PER DAY FOR 5 DAYS (2 AT A TIME).
     Route: 048
     Dates: start: 20100621, end: 20100626
  2. EXTRA STRENGTH TYLENOL [Suspect]
     Indication: HEADACHE
     Dosage: 8 PILLS PER DAY FOR 5 DAYS (2 AT A TIME).
     Route: 048
     Dates: start: 20100621, end: 20100626
  3. EXTRA STRENGTH TYLENOL [Suspect]
     Indication: BACK PAIN
     Dosage: 8 PILLS PER DAY FOR 5 DAYS (2 AT A TIME).
     Route: 048
     Dates: start: 20100621, end: 20100626
  4. EXTRA STRENGTH TYLENOL [Suspect]
     Indication: TOOTHACHE
     Dosage: 8 PILLS PER DAY FOR 5 DAYS (2 AT A TIME).
     Route: 048
     Dates: start: 20100621, end: 20100626
  5. TRAMADOL [Concomitant]
     Indication: PRODUCT USED FOR UNKNOWN INDICATION
     Route: 048
     Dates: start: 20100626
  6. ZOFRAN [Concomitant]
     Indication: PRODUCT USED FOR UNKNOWN INDICATION
     Route: 042
  7. MORPHINE SULFATE [Concomitant]
     Indication: PRODUCT USED FOR UNKNOWN INDICATION
     Route: 065
  8. DILAUDID [Concomitant]
     Indication: PRODUCT USED FOR UNKNOWN INDICATION
     Route: 042
  9. CLINDAMYCIN [Concomitant]
     Indication: PRODUCT USED FOR UNKNOWN INDICATION
     Route: 048
  10. MACROBID (NITROFURANTOIN) [Concomitant]
     Indication: PRODUCT USED FOR UNKNOWN INDICATION
     Route: 048
  11. SODIUM CHLORIDE [Concomitant]
     Indication: PRODUCT USED FOR UNKNOWN INDICATION
     Route: 042
  12. ONDANSETRON [Concomitant]
     Indication: VOMITING
     Route: 042
  13. ONDANSETRON [Concomitant]
     Indication: NAUSEA
     Route: 042
  14. PROTONIX [Concomitant]
     Indication: PRODUCT USED FOR UNKNOWN INDICATION
     Route: 042
  15. ACETYLCYSTEINE [Concomitant]
     Indication: PRODUCT USED FOR UNKNOWN INDICATION
     Route: 048

REACTIONS (9)
  - Haemorrhagic diathesis [Unknown]
  - Epistaxis [Unknown]
  - Haemorrhagic anaemia [Unknown]
  - Essential hypertension [Unknown]
  - Thrombocytopenia [Unknown]
  - Hepatitis [Unknown]
  - Overdose [Unknown]
  - Toxicity to various agents [Recovering/Resolving]
  - Acute hepatic failure [Unknown]
